FAERS Safety Report 19301876 (Version 1)
Quarter: 2021Q2

REPORT INFORMATION
  Report Type: Spontaneous
  Country: PT (occurrence: PT)
  Receive Date: 20210525
  Receipt Date: 20210525
  Transmission Date: 20210717
  Serious: Yes (Hospitalization)
  Sender: FDA-Public Use
  Company Number: PT-JNJFOC-20210534082

PATIENT
  Age: 50 Year
  Sex: Male

DRUGS (7)
  1. TOPAMAX [Suspect]
     Active Substance: TOPIRAMATE
     Indication: PRODUCT USED FOR UNKNOWN INDICATION
     Route: 048
  2. LITHIUM. [Suspect]
     Active Substance: LITHIUM
     Indication: SCHIZOAFFECTIVE DISORDER
     Route: 065
  3. XEPLION [Suspect]
     Active Substance: PALIPERIDONE PALMITATE
  4. XEPLION [Suspect]
     Active Substance: PALIPERIDONE PALMITATE
  5. LITHIUM. [Suspect]
     Active Substance: LITHIUM
     Route: 065
  6. RISPERDAL [Suspect]
     Active Substance: RISPERIDONE
     Indication: SCHIZOAFFECTIVE DISORDER
     Route: 048
  7. XEPLION [Suspect]
     Active Substance: PALIPERIDONE PALMITATE
     Indication: SCHIZOAFFECTIVE DISORDER
     Route: 030

REACTIONS (1)
  - Schizoaffective disorder [Recovering/Resolving]

NARRATIVE: CASE EVENT DATE: 2018
